FAERS Safety Report 13465070 (Version 1)
Quarter: 2017Q2

REPORT INFORMATION
  Report Type: Report from Study
  Country: None (occurrence: GB)
  Receive Date: 20170421
  Receipt Date: 20170421
  Transmission Date: 20170830
  Serious: Yes (Hospitalization)
  Sender: FDA-Public Use
  Company Number: GB-ABBVIE-17K-167-1945142-00

PATIENT
  Age: 31 Year
  Sex: Male

DRUGS (1)
  1. HUMIRA [Suspect]
     Active Substance: ADALIMUMAB
     Indication: PRODUCT USED FOR UNKNOWN INDICATION
     Route: 058
     Dates: start: 20160811

REACTIONS (8)
  - Varicella [Unknown]
  - Crohn^s disease [Unknown]
  - Cytomegalovirus infection [Unknown]
  - Immunodeficiency [Unknown]
  - Anaemia [Unknown]
  - Folliculitis [Unknown]
  - Colitis [Unknown]
  - Syncope [Unknown]

NARRATIVE: CASE EVENT DATE: 201609
